FAERS Safety Report 16709170 (Version 1)
Quarter: 2019Q3

REPORT INFORMATION
  Report Type: Spontaneous
  Country: US (occurrence: US)
  Receive Date: 20190628
  Receipt Date: 20190628
  Transmission Date: 20191004
  Serious: No
  Sender: FDA-Public Use
  Company Number: None

PATIENT
  Age: 60 Year
  Sex: Female
  Weight: 78.02 kg

DRUGS (8)
  1. CYMBALTA [Suspect]
     Active Substance: DULOXETINE HYDROCHLORIDE
     Indication: BIPOLAR DISORDER
     Dosage: ?          QUANTITY:15 TOT - TOTAL;?
     Route: 048
     Dates: start: 20180910, end: 20180928
  2. SAVELLA 50 MG [Concomitant]
  3. COENZYME Q10 [Concomitant]
     Active Substance: UBIDECARENONE
  4. OMERON BLOOD PRESSURE [Concomitant]
  5. CYMBALTA [Suspect]
     Active Substance: DULOXETINE HYDROCHLORIDE
     Indication: AFFECT LABILITY
     Dosage: ?          QUANTITY:15 TOT - TOTAL;?
     Route: 048
     Dates: start: 20180910, end: 20180928
  6. SIMVASTATIN. [Concomitant]
     Active Substance: SIMVASTATIN
  7. CYMBALTA [Suspect]
     Active Substance: DULOXETINE HYDROCHLORIDE
     Indication: RADICULOPATHY
     Dosage: ?          QUANTITY:15 TOT - TOTAL;?
     Route: 048
     Dates: start: 20180910, end: 20180928
  8. CYMBALTA [Suspect]
     Active Substance: DULOXETINE HYDROCHLORIDE
     Indication: SCHIZOPHRENIA
     Dosage: ?          QUANTITY:15 TOT - TOTAL;?
     Route: 048
     Dates: start: 20180910, end: 20180928

REACTIONS (10)
  - Dizziness [None]
  - Inability to afford medication [None]
  - Vomiting [None]
  - Behavioural therapy [None]
  - Arthralgia [None]
  - Spinal cord compression [None]
  - Wrong technique in product usage process [None]
  - Neck pain [None]
  - Therapeutic product effect increased [None]
  - Pain in extremity [None]
